FAERS Safety Report 7372610 (Version 3)
Quarter: 2012Q4

REPORT INFORMATION
  Report Type: 
  Country: US (occurrence: US)
  Receive Date: 20100430
  Receipt Date: 20121128
  Transmission Date: 20130627
  Serious: Yes (Hospitalization)
  Sender: FDA-Public Use
  Company Number: US-ASTRAZENECA-2010SE01065

PATIENT
  Age: 81 Year
  Sex: Female

DRUGS (3)
  1. NEXIUM [Suspect]
     Route: 048
  2. CARDIZEM [Interacting]
     Route: 065
  3. CEFTIN [Suspect]
     Route: 065

REACTIONS (11)
  - Drug interaction [Unknown]
  - Myocardial infarction [Unknown]
  - Pneumonia [Unknown]
  - Adverse event [Unknown]
  - Haemorrhoidal haemorrhage [Unknown]
  - Haemorrhage [Unknown]
  - Adverse event [Unknown]
  - Therapeutic response unexpected [Unknown]
  - Dysgeusia [Unknown]
  - Malaise [Unknown]
  - Vomiting [Unknown]
